FAERS Safety Report 9386034 (Version 1)
Quarter: 2013Q3

REPORT INFORMATION
  Report Type: Spontaneous
  Country: DK (occurrence: DK)
  Receive Date: 20130705
  Receipt Date: 20130705
  Transmission Date: 20140515
  Serious: Yes (Hospitalization)
  Sender: FDA-Public Use
  Company Number: DK-MERCK-2011SP040144

PATIENT
  Age: 12 Year
  Sex: Female
  Weight: 64 kg

DRUGS (3)
  1. GARDASIL [Suspect]
     Indication: IMMUNISATION
     Route: 030
     Dates: start: 20101228, end: 20101228
  2. IMPLANON [Suspect]
     Indication: PRODUCT USED FOR UNKNOWN INDICATION
     Dosage: 1 DF, UNK
     Route: 059
     Dates: start: 2011
  3. PRIORIX [Concomitant]
     Indication: IMMUNISATION
     Route: 058
     Dates: start: 20101228, end: 20101228

REACTIONS (2)
  - Facial paresis [Recovered/Resolved]
  - Medical device complication [Not Recovered/Not Resolved]
